FAERS Safety Report 8250471-8 (Version None)
Quarter: 2012Q2

REPORT INFORMATION
  Report Type: 
  Country: None (occurrence: None)
  Receive Date: 20120402
  Receipt Date: 20120402
  Transmission Date: 20120825
  Serious: No
  Sender: FDA-Public Use
  Company Number: None

PATIENT

DRUGS (2)
  1. DIAZEPAM [Suspect]
  2. DIAZEPAM [Concomitant]

REACTIONS (1)
  - PRODUCT PACKAGING QUANTITY ISSUE [None]
